FAERS Safety Report 4282126-9 (Version None)
Quarter: 2004Q1

REPORT INFORMATION
  Report Type: 
  Country: None (occurrence: None)
  Receive Date: 20040130
  Receipt Date: 20030925
  Transmission Date: 20041129
  Serious: No
  Sender: FDA-Public Use
  Company Number: US-BRISTOL-MYERS SQUIBB COMPANY-12393971

PATIENT
  Age: 69 Year
  Sex: Male
  Weight: 55 kg

DRUGS (6)
  1. TRAZODONE HCL [Suspect]
     Indication: INSOMNIA
     Dosage: AT NIGHT; THERAPY DURATION - ^FOR YEARS^
     Route: 048
  2. LEXAPRO [Concomitant]
  3. LISINOPRIL [Concomitant]
  4. NORVASC [Concomitant]
  5. PRAVACHOL [Concomitant]
  6. COREG [Concomitant]
     Indication: HEART RATE IRREGULAR

REACTIONS (2)
  - DRUG WITHDRAWAL SYNDROME [None]
  - NIGHTMARE [None]
